FAERS Safety Report 5494880-9 (Version None)
Quarter: 2007Q4

REPORT INFORMATION
  Report Type: 
  Country: None (occurrence: None)
  Receive Date: 20071022
  Receipt Date: 20071009
  Transmission Date: 20080405
  Serious: Yes (Other)
  Sender: FDA-Public Use
  Company Number: GXKR2007JP05175

PATIENT
  Age: 73 Year
  Sex: Female

DRUGS (4)
  1. ISONIAZID [Suspect]
     Dosage: 300 MG, QD,
     Dates: start: 20050530
  2. PYRAZINAMIDE [Suspect]
     Dosage: 1.2 G, QD,
     Dates: start: 20050530
  3. RIFAMPICIN [Suspect]
     Dosage: 450 MG, QD,
     Dates: start: 20050530
  4. ETHAMBUTOL HYDROCHLORIDE [Suspect]
     Dosage: 750 MG, QD,
     Dates: start: 20050530

REACTIONS (4)
  - CONDITION AGGRAVATED [None]
  - LUNG DISORDER [None]
  - MYCOBACTERIUM ABSCESSUS INFECTION [None]
  - PULMONARY TUBERCULOSIS [None]
